FAERS Safety Report 19512279 (Version 2)
Quarter: 2021Q3

REPORT INFORMATION
  Report Type: Report from Study
  Country: JP (occurrence: JP)
  Receive Date: 20210709
  Receipt Date: 20210917
  Transmission Date: 20211014
  Serious: Yes (Hospitalization)
  Sender: FDA-Public Use
  Company Number: JP-ELI_LILLY_AND_COMPANY-JP202106014381

PATIENT
  Age: 77 Year
  Sex: Female

DRUGS (1)
  1. OLUMIANT [Suspect]
     Active Substance: BARICITINIB
     Indication: RHEUMATOID ARTHRITIS
     Dosage: 4 MG, DAILY
     Route: 048
     Dates: start: 20190802

REACTIONS (8)
  - Decreased appetite [Recovering/Resolving]
  - Hypoacusis [Recovering/Resolving]
  - Rash [Recovered/Resolved]
  - Headache [Recovered/Resolved]
  - Kidney enlargement [Unknown]
  - Visual acuity reduced [Recovering/Resolving]
  - Pyrexia [Recovered/Resolved]
  - Dehydration [Recovered/Resolved]

NARRATIVE: CASE EVENT DATE: 202105
